FAERS Safety Report 5649490-7 (Version None)
Quarter: 2008Q1

REPORT INFORMATION
  Report Type: 
  Country: None (occurrence: None)
  Receive Date: 20080303
  Receipt Date: 20080303
  Transmission Date: 20080703
  Serious: Yes (Other)
  Sender: FDA-Public Use
  Company Number: None

PATIENT
  Age: 54 Year
  Sex: Male
  Weight: 67.1324 kg

DRUGS (2)
  1. CIPROFLOXACIN [Suspect]
     Indication: URINARY TRACT INFECTION
     Dosage: 20 2 PER DAY PO
     Route: 048
     Dates: start: 20070712, end: 20070722
  2. CIPROFLOXACIN [Suspect]
     Indication: URINARY TRACT INFECTION
     Dosage: 20 2 PER DAY PO
     Route: 048
     Dates: start: 20080209, end: 20080219

REACTIONS (2)
  - PAIN IN EXTREMITY [None]
  - TENDON DISORDER [None]
